FAERS Safety Report 10222815 (Version 2)
Quarter: 2014Q2

REPORT INFORMATION
  Report Type: Spontaneous
  Country: JP (occurrence: JP)
  Receive Date: 20140606
  Receipt Date: 20140613
  Transmission Date: 20141212
  Serious: Yes (Life-Threatening)
  Sender: FDA-Public Use
  Company Number: JP-ASTRAZENECA-2014SE39228

PATIENT
  Age: 85 Year
  Sex: Female

DRUGS (2)
  1. OMEPRAZONE (NON-AZ PRODUCT) [Suspect]
     Dosage: DOSE UNKNOWN
  2. SULPIRIDE [Suspect]
     Dosage: DOSE UNKNOWN
     Route: 065

REACTIONS (4)
  - Long QT syndrome [Recovered/Resolved]
  - Respiratory arrest [Recovered/Resolved]
  - Ventricular tachycardia [Recovered/Resolved]
  - Ventricular fibrillation [Recovered/Resolved]
